FAERS Safety Report 14732735 (Version 1)
Quarter: 2018Q2

REPORT INFORMATION
  Report Type: Spontaneous
  Country: US (occurrence: US)
  Receive Date: 20180409
  Receipt Date: 20180409
  Transmission Date: 20180711
  Serious: Yes (Other)
  Sender: FDA-Public Use
  Company Number: US-ASTRAZENECA-2018SE42718

PATIENT
  Sex: Male

DRUGS (2)
  1. SEROQUEL [Suspect]
     Active Substance: QUETIAPINE FUMARATE
     Route: 048
  2. SEROQUEL [Suspect]
     Active Substance: QUETIAPINE FUMARATE
     Route: 048

REACTIONS (8)
  - Loss of consciousness [Unknown]
  - Weight increased [Unknown]
  - Blood glucose increased [Unknown]
  - Heart rate irregular [Unknown]
  - Palpitations [Unknown]
  - Peripheral swelling [Unknown]
  - Night sweats [Unknown]
  - Pain in extremity [Unknown]
